FAERS Safety Report 18048556 (Version 1)
Quarter: 2020Q3

REPORT INFORMATION
  Report Type: Spontaneous
  Country: US (occurrence: US)
  Receive Date: 20200721
  Receipt Date: 20200721
  Transmission Date: 20201103
  Serious: No
  Sender: FDA-Public Use
  Company Number: US-TEVA-2020-US-1803207

PATIENT

DRUGS (1)
  1. ALBUTEROL SULFATE HFA [Suspect]
     Active Substance: ALBUTEROL SULFATE
     Route: 055

REACTIONS (6)
  - Vomiting [Unknown]
  - Therapeutic product effect delayed [Unknown]
  - Asthma [Unknown]
  - Drug ineffective [Unknown]
  - Product taste abnormal [Unknown]
  - Product substitution issue [Unknown]
